FAERS Safety Report 10528958 (Version 1)
Quarter: 2014Q4

REPORT INFORMATION
  Report Type: Spontaneous
  Country: US (occurrence: US)
  Receive Date: 20141020
  Receipt Date: 20141020
  Transmission Date: 20150528
  Serious: Yes (Other)
  Sender: FDA-Public Use
  Company Number: US-PFIZER INC-2014282925

PATIENT
  Sex: Male

DRUGS (1)
  1. GABAPENTIN. [Suspect]
     Active Substance: GABAPENTIN
     Dosage: 900 MG, UNK

REACTIONS (5)
  - Hyperhidrosis [Unknown]
  - Influenza like illness [Recovered/Resolved]
  - Dementia Alzheimer^s type [Unknown]
  - Pain [Recovering/Resolving]
  - Hypersomnia [Unknown]
